FAERS Safety Report 5166356-X (Version None)
Quarter: 2006Q4

REPORT INFORMATION
  Report Type: 
  Country: None (occurrence: None)
  Receive Date: 20061124
  Receipt Date: 20061116
  Transmission Date: 20070319
  Serious: Yes (Other)
  Sender: FDA-Public Use
  Company Number: THYM-11137

PATIENT
  Age: 38 Year
  Sex: Male

DRUGS (11)
  1. THYMOGLOBULIN [Suspect]
     Indication: KIDNEY TRANSPLANT REJECTION
     Dosage: 100 MG QD IV
     Route: 042
     Dates: start: 20061005, end: 20061005
  2. THYMOGLOBULIN [Suspect]
     Indication: KIDNEY TRANSPLANT REJECTION
     Dosage: 100 MG QD IV
     Route: 042
     Dates: start: 20061007, end: 20061007
  3. THYMOGLOBULIN [Suspect]
     Indication: KIDNEY TRANSPLANT REJECTION
     Dosage: 100 MG QD IV
     Route: 042
     Dates: start: 20061009, end: 20061009
  4. THYMOGLOBULIN [Suspect]
     Indication: KIDNEY TRANSPLANT REJECTION
     Dosage: 100 MG QD IV
     Route: 042
     Dates: start: 20061011, end: 20061011
  5. THYMOGLOBULIN [Suspect]
     Indication: KIDNEY TRANSPLANT REJECTION
     Dosage: 100 MG QD IV
     Route: 042
     Dates: start: 20061013, end: 20061013
  6. PROGRAF [Concomitant]
  7. PREDNISONE TAB [Concomitant]
  8. SOLU-MEDROL [Concomitant]
  9. ARAVA [Concomitant]
  10. BACTRIM [Concomitant]
  11. DIFLUCAN [Concomitant]

REACTIONS (3)
  - ARTHRALGIA [None]
  - BACTERIAL INFECTION [None]
  - INFUSION SITE INFECTION [None]
